FAERS Safety Report 4267280-7 (Version None)
Quarter: 2004Q1

REPORT INFORMATION
  Report Type: 
  Country: None (occurrence: None)
  Receive Date: 20040108
  Receipt Date: 20030404
  Transmission Date: 20041129
  Serious: Yes (Hospitalization)
  Sender: FDA-Public Use
  Company Number: WAES 0304USA00567

PATIENT
  Age: 74 Year
  Sex: Female
  Weight: 49 kg

DRUGS (21)
  1. PLAVIX [Concomitant]
  2. FEMHRT [Concomitant]
  3. LASIX [Suspect]
     Dates: start: 20010403, end: 20010401
  4. LASIX [Suspect]
     Route: 042
     Dates: start: 20010327, end: 20010401
  5. PLAQUENIL [Concomitant]
     Dates: start: 20010126
  6. ADVIL [Concomitant]
  7. LOTEMAX [Concomitant]
     Route: 047
  8. LOPRESSOR [Concomitant]
     Dates: end: 20010404
  9. CENTRUM [Concomitant]
  10. PILOCARPINE [Concomitant]
  11. SALAGEN [Concomitant]
     Indication: DRY MOUTH
     Dates: end: 20010323
  12. SALAGEN [Concomitant]
     Indication: KERATOCONJUNCTIVITIS SICCA
     Dates: end: 20010323
  13. VIOXX [Suspect]
     Indication: SPINAL OSTEOARTHRITIS
     Route: 048
     Dates: start: 20010111, end: 20010301
  14. VIOXX [Suspect]
     Route: 048
     Dates: start: 20010323, end: 20010301
  15. VIOXX [Suspect]
     Route: 048
     Dates: start: 20010401, end: 20010401
  16. VIOXX [Suspect]
     Indication: LOCALISED OSTEOARTHRITIS
     Route: 048
     Dates: start: 20010111, end: 20010301
  17. VIOXX [Suspect]
     Route: 048
     Dates: start: 20010323, end: 20010301
  18. VIOXX [Suspect]
     Route: 048
     Dates: start: 20010401, end: 20010401
  19. ZOCOR [Concomitant]
     Route: 048
     Dates: end: 20030729
  20. ZOCOR [Concomitant]
     Route: 048
  21. TIMOPTIC [Concomitant]
     Route: 047

REACTIONS (43)
  - AORTIC VALVE INCOMPETENCE [None]
  - AZOTAEMIA [None]
  - BACK PAIN [None]
  - BUNDLE BRANCH BLOCK LEFT [None]
  - CARDIAC FAILURE CONGESTIVE [None]
  - CARDIOMEGALY [None]
  - CHANGE OF BOWEL HABIT [None]
  - CHEST PAIN [None]
  - CONSTIPATION [None]
  - CONTUSION [None]
  - CORONARY ARTERY DISEASE [None]
  - CORONARY ARTERY STENOSIS [None]
  - CRACKLES LUNG [None]
  - DEPRESSION [None]
  - DIARRHOEA [None]
  - EYE PAIN [None]
  - FALL [None]
  - HAEMATOCRIT DECREASED [None]
  - HAEMOGLOBIN DECREASED [None]
  - HYPERCHOLESTEROLAEMIA [None]
  - HYPERTENSION [None]
  - HYPOTENSION [None]
  - ISCHAEMIC CARDIOMYOPATHY [None]
  - JOINT SPRAIN [None]
  - JUGULAR VEIN DISTENSION [None]
  - MITRAL VALVE INCOMPETENCE [None]
  - MYOCARDIAL INFARCTION [None]
  - NEPHROPATHY TOXIC [None]
  - ORAL CANDIDIASIS [None]
  - OXYGEN SATURATION DECREASED [None]
  - PITTING OEDEMA [None]
  - PLEURAL EFFUSION [None]
  - PNEUMONITIS [None]
  - PULMONARY OEDEMA [None]
  - PULMONARY VALVE INCOMPETENCE [None]
  - RENAL FAILURE [None]
  - RESPIRATORY DISTRESS [None]
  - ROSACEA [None]
  - ROTATOR CUFF SYNDROME [None]
  - TENDONITIS [None]
  - TRICUSPID VALVE INCOMPETENCE [None]
  - VENTRICULAR DYSFUNCTION [None]
  - VISUAL DISTURBANCE [None]
